FAERS Safety Report 5707049-7 (Version None)
Quarter: 2008Q2

REPORT INFORMATION
  Report Type: 
  Country: None (occurrence: None)
  Receive Date: 20080416
  Receipt Date: 20080407
  Transmission Date: 20081010
  Serious: Yes (Hospitalization)
  Sender: FDA-Public Use
  Company Number: B0514356A

PATIENT
  Age: 73 Year
  Sex: Male
  Weight: 82.1 kg

DRUGS (2)
  1. LAMOTRIGINE [Suspect]
     Indication: EPILEPSY
     Route: 048
     Dates: start: 20080111
  2. K-DUR [Concomitant]
     Dosage: 20MEQ PER DAY
     Route: 048
     Dates: start: 20080327

REACTIONS (4)
  - CARDIAC FAILURE CONGESTIVE [None]
  - PNEUMONIA [None]
  - RESPIRATION ABNORMAL [None]
  - RESPIRATORY DISORDER [None]
